FAERS Safety Report 7783471-2 (Version None)
Quarter: 2011Q3

REPORT INFORMATION
  Report Type: 
  Country: None (occurrence: None)
  Receive Date: 20110928
  Receipt Date: 20110920
  Transmission Date: 20111222
  Serious: Yes (Death)
  Sender: FDA-Public Use
  Company Number: DE-PFIZER INC-2011228803

PATIENT
  Sex: Male

DRUGS (2)
  1. ARGATRA [Suspect]
     Dosage: 0.19 UG/KG/MIN
     Route: 042
  2. ARGATRA [Suspect]
     Indication: HEPARIN-INDUCED THROMBOCYTOPENIA
     Dosage: 0.48 UG/KG/MIN
     Route: 042

REACTIONS (1)
  - PULMONARY EMBOLISM [None]
